FAERS Safety Report 24934118 (Version 1)
Quarter: 2025Q1

REPORT INFORMATION
  Report Type: Report from Study
  Country: TW (occurrence: TW)
  Receive Date: 20250206
  Receipt Date: 20250206
  Transmission Date: 20250408
  Serious: Yes (Death, Other)
  Sender: EXELIXIS
  Company Number: TW-IPSEN Group, Research and Development-2024-12184

PATIENT
  Age: 72 Year
  Sex: Male

DRUGS (1)
  1. CABOMETYX [Suspect]
     Active Substance: CABOZANTINIB S-MALATE
     Indication: Hepatocellular carcinoma
     Dosage: 1 TIME(S) PER DAY
     Route: 048
     Dates: start: 20240529, end: 20240606

REACTIONS (1)
  - Malignant neoplasm progression [Fatal]
